FAERS Safety Report 25857296 (Version 1)
Quarter: 2025Q3

REPORT INFORMATION
  Report Type: Spontaneous
  Country: US (occurrence: US)
  Receive Date: 20250929
  Receipt Date: 20250929
  Transmission Date: 20251020
  Serious: No
  Sender: JOHNSON AND JOHNSON
  Company Number: US-JNJFOC-20250931764

PATIENT
  Sex: Female

DRUGS (1)
  1. OPSUMIT [Suspect]
     Active Substance: MACITENTAN
     Indication: Product used for unknown indication
     Route: 048

REACTIONS (6)
  - Scab [Unknown]
  - Eye contusion [Unknown]
  - Headache [Unknown]
  - Platelet count decreased [Unknown]
  - Insomnia [Unknown]
  - Palpitations [Unknown]
